FAERS Safety Report 7465074-2 (Version None)
Quarter: 2011Q2

REPORT INFORMATION
  Report Type: 
  Country: None (occurrence: None)
  Receive Date: 20110509
  Receipt Date: 20110504
  Transmission Date: 20111010
  Serious: Yes (Death, Hospitalization)
  Sender: FDA-Public Use
  Company Number: US-ABBOTT-11P-163-0723413-00

PATIENT
  Age: 40 Year
  Sex: Male

DRUGS (1)
  1. HUMIRA [Suspect]
     Indication: PSORIATIC ARTHROPATHY
     Dates: start: 20110331, end: 20110331

REACTIONS (6)
  - MULTI-ORGAN FAILURE [None]
  - SUDDEN DEATH [None]
  - ABDOMINAL PAIN [None]
  - NAUSEA [None]
  - SKIN DISCOLOURATION [None]
  - PANCREATITIS NECROTISING [None]
